APPROVED DRUG PRODUCT: PROPRANOLOL HYDROCHLORIDE AND HYDROCHLOROTHIAZIDE
Active Ingredient: HYDROCHLOROTHIAZIDE; PROPRANOLOL HYDROCHLORIDE
Strength: 25MG;40MG
Dosage Form/Route: TABLET;ORAL
Application: A070851 | Product #001
Applicant: ACTAVIS ELIZABETH LLC
Approved: May 15, 1986 | RLD: No | RS: No | Type: DISCN